FAERS Safety Report 9269964 (Version 7)
Quarter: 2013Q3

REPORT INFORMATION
  Report Type: Spontaneous
  Country: US (occurrence: US)
  Receive Date: 20130503
  Receipt Date: 20130816
  Transmission Date: 20140515
  Serious: Yes (Hospitalization, Other)
  Sender: FDA-Public Use
  Company Number: US-PFIZER INC-2013134419

PATIENT
  Age: 77 Year
  Sex: Female
  Weight: 72.56 kg

DRUGS (12)
  1. AMIODARONE HCL [Suspect]
     Dosage: UNK
     Dates: end: 201303
  2. LOSARTAN POTASSIUM [Interacting]
     Indication: HYPERTENSION
     Dosage: 12.5 MG, 2X/DAY
     Route: 048
     Dates: start: 20121102
  3. LOSARTAN POTASSIUM [Interacting]
     Indication: ATRIAL FIBRILLATION
  4. WARFARIN [Interacting]
     Dosage: 4 MG, 1X/DAY
     Route: 065
     Dates: end: 201303
  5. SYNTHROID [Interacting]
     Dosage: 112 UG, 1X/DAY
     Route: 065
  6. MULTAQ [Interacting]
     Dosage: UNK
     Dates: start: 20130312
  7. CENTRUM SILVER [Concomitant]
     Dosage: UNK
  8. FISH OIL [Concomitant]
     Dosage: UNK
  9. VITAMIN D3 [Concomitant]
     Dosage: UNK
  10. MAGNESIUM [Concomitant]
     Dosage: 250 MG, UNK
  11. ASPIRIN [Concomitant]
     Dosage: 162 MG, UNK
  12. CRANBERRY [Concomitant]
     Dosage: UNK

REACTIONS (7)
  - Drug interaction [Unknown]
  - Supraventricular extrasystoles [Unknown]
  - Feeling cold [Not Recovered/Not Resolved]
  - Tremor [Not Recovered/Not Resolved]
  - Sensory disturbance [Unknown]
  - Tricuspid valve incompetence [Unknown]
  - Dilatation atrial [Unknown]
